FAERS Safety Report 22285184 (Version 1)
Quarter: 2023Q2

REPORT INFORMATION
  Report Type: Spontaneous
  Country: US (occurrence: None)
  Receive Date: 20230503
  Receipt Date: 20230503
  Transmission Date: 20230722
  Serious: Yes (Hospitalization)
  Sender: FDA-Public Use
  Company Number: None

PATIENT
  Sex: Male

DRUGS (1)
  1. TALTZ [Suspect]
     Active Substance: IXEKIZUMAB
     Indication: Psoriasis
     Dosage: 80 MG/ML SUBCUTANEOUS??RX1: INJECT 2 PENS (160 MG) UNDER THE SKIN (SUBCUTANEOUS INJECTION)ON DAY 1,
     Route: 058
     Dates: start: 20230309

REACTIONS (5)
  - Spinal operation [None]
  - Therapy interrupted [None]
  - Rash [None]
  - Discomfort [None]
  - Condition aggravated [None]
